FAERS Safety Report 17948225 (Version 1)
Quarter: 2020Q2

REPORT INFORMATION
  Report Type: Spontaneous
  Country: US (occurrence: US)
  Receive Date: 20200625
  Receipt Date: 20200625
  Transmission Date: 20200714
  Serious: No
  Sender: FDA-Public Use
  Company Number: US-NOVOPROD-716441

PATIENT
  Sex: Male

DRUGS (2)
  1. OZEMPIC [Suspect]
     Active Substance: SEMAGLUTIDE
     Indication: TYPE 2 DIABETES MELLITUS
     Dosage: 0.25 MG, SINGLE
     Route: 058
     Dates: start: 20200220, end: 202002
  2. OZEMPIC [Suspect]
     Active Substance: SEMAGLUTIDE
     Indication: OBESITY
     Dosage: 0.5 MG
     Route: 058
     Dates: start: 202002

REACTIONS (3)
  - Rash macular [Not Recovered/Not Resolved]
  - Off label use [Unknown]
  - Decreased appetite [Unknown]

NARRATIVE: CASE EVENT DATE: 202002
